FAERS Safety Report 19580647 (Version 1)
Quarter: 2021Q3

REPORT INFORMATION
  Report Type: Spontaneous
  Country: US (occurrence: US)
  Receive Date: 20210720
  Receipt Date: 20210720
  Transmission Date: 20211014
  Serious: Yes (Hospitalization)
  Sender: FDA-Public Use
  Company Number: US-ROCHE-2871609

PATIENT
  Sex: Female

DRUGS (11)
  1. BENZONATATE. [Concomitant]
     Active Substance: BENZONATATE
  2. COLISTIMETHATE SODIUM. [Concomitant]
     Active Substance: COLISTIMETHATE SODIUM
  3. TOBRAMYCIN. [Concomitant]
     Active Substance: TOBRAMYCIN
  4. PULMOZYME [Suspect]
     Active Substance: DORNASE ALFA
     Indication: CYSTIC FIBROSIS
     Dosage: 1 AMPULE PER NEBULIZER
     Route: 055
  5. FLUOXETINE HCL [Concomitant]
     Active Substance: FLUOXETINE HYDROCHLORIDE
  6. LEVEMIR [Concomitant]
     Active Substance: INSULIN DETEMIR
  7. MEGESTROL ACETATE. [Concomitant]
     Active Substance: MEGESTROL ACETATE
  8. CORLANOR [Concomitant]
     Active Substance: IVABRADINE HYDROCHLORIDE
  9. OXCARBAZEPINE. [Concomitant]
     Active Substance: OXCARBAZEPINE
  10. NOVOLOG [Concomitant]
     Active Substance: INSULIN ASPART
  11. OLANZAPINE. [Concomitant]
     Active Substance: OLANZAPINE

REACTIONS (2)
  - Cystic fibrosis [Not Recovered/Not Resolved]
  - Off label use [Unknown]
